FAERS Safety Report 16227189 (Version 1)
Quarter: 2019Q2

REPORT INFORMATION
  Report Type: Report from Study
  Country: JP (occurrence: JP)
  Receive Date: 20190423
  Receipt Date: 20190423
  Transmission Date: 20190711
  Serious: Yes (Hospitalization)
  Sender: FDA-Public Use
  Company Number: JP-BIOGEN-2018BI00527137

PATIENT
  Age: 4 Year
  Sex: Male
  Weight: 17.5 kg

DRUGS (9)
  1. SPINRAZA [Suspect]
     Active Substance: NUSINERSEN
     Indication: SPINAL MUSCULAR ATROPHY
     Route: 050
     Dates: start: 20180117, end: 20180117
  2. SPINRAZA [Suspect]
     Active Substance: NUSINERSEN
     Route: 050
     Dates: start: 20180214, end: 20180214
  3. EMLA [Concomitant]
     Active Substance: LIDOCAINE\PRILOCAINE
     Route: 050
     Dates: start: 20180411, end: 20180411
  4. RAVONAL [Concomitant]
     Active Substance: THIOPENTAL
     Indication: ANAESTHESIA PROCEDURE
     Dates: start: 20180117, end: 20180117
  5. RAVONAL [Concomitant]
     Active Substance: THIOPENTAL
     Dates: start: 20180411, end: 20180411
  6. EMLA [Concomitant]
     Active Substance: LIDOCAINE\PRILOCAINE
     Indication: ANAESTHESIA PROCEDURE
     Route: 050
     Dates: start: 20180117, end: 20180117
  7. EMLA [Concomitant]
     Active Substance: LIDOCAINE\PRILOCAINE
     Route: 050
     Dates: start: 20180214, end: 20180214
  8. SPINRAZA [Suspect]
     Active Substance: NUSINERSEN
     Route: 050
     Dates: start: 20180411, end: 20180411
  9. RAVONAL [Concomitant]
     Active Substance: THIOPENTAL
     Dates: start: 20180214, end: 20180214

REACTIONS (2)
  - Back pain [Recovered/Resolved]
  - Kawasaki^s disease [Unknown]

NARRATIVE: CASE EVENT DATE: 20180215
